FAERS Safety Report 8840214 (Version 1)
Quarter: 2012Q4

REPORT INFORMATION
  Report Type: Report from Study
  Country: FR (occurrence: FR)
  Receive Date: 20121015
  Receipt Date: 20121015
  Transmission Date: 20130627
  Serious: Yes (Death, Hospitalization)
  Sender: FDA-Public Use
  Company Number: FR-CELGENEUS-056-21880-11022901

PATIENT
  Age: 71 Year
  Sex: Female
  Weight: 57 kg

DRUGS (6)
  1. REVLIMID [Suspect]
     Indication: ACUTE MYELOID LEUKEMIA
     Dosage: 10 Milligram
     Route: 048
     Dates: start: 20100409, end: 20110201
  2. ARACYTINE [Concomitant]
     Indication: ACUTE MYELOID LEUKEMIA
     Dosage: 300 Milligram
     Route: 041
     Dates: start: 20100409, end: 20101027
  3. DAUNORUBICINE [Concomitant]
     Indication: ACUTE MYELOID LEUKEMIA
     Dosage: 90 Milligram
     Route: 041
     Dates: start: 20100409, end: 20101026
  4. ALDALIX [Concomitant]
     Indication: HYPERTENSION ARTERIAL
     Dosage: 50 Milligram
     Route: 048
     Dates: end: 20110218
  5. ALDALIX [Concomitant]
     Dosage: 50 Milligram
     Route: 048
     Dates: start: 20110303, end: 20110317
  6. ART [Concomitant]
     Indication: OSTEOARTHRITIS
     Dosage: 100 Milligram
     Route: 048
     Dates: end: 20110317

REACTIONS (4)
  - Respiratory distress [Fatal]
  - Acute myeloid leukaemia recurrent [Not Recovered/Not Resolved]
  - Febrile neutropenia [Not Recovered/Not Resolved]
  - Lung disorder [Not Recovered/Not Resolved]
